FAERS Safety Report 4667971-X (Version None)
Quarter: 2005Q2

REPORT INFORMATION
  Report Type: 
  Country: None (occurrence: None)
  Receive Date: 20050520
  Receipt Date: 20050512
  Transmission Date: 20051028
  Serious: Yes (Death, Life-Threatening, Hospitalization, Disabling, Other)
  Sender: FDA-Public Use
  Company Number: 2005PK00830

PATIENT
  Age: 28661 Day
  Sex: Male
  Weight: 71.5 kg

DRUGS (2)
  1. ZD1839 [Suspect]
     Indication: NON-SMALL CELL LUNG CANCER
     Route: 048
     Dates: start: 20050311, end: 20050429
  2. ISOPTIN [Concomitant]
     Indication: HYPERTENSION
     Route: 048
     Dates: start: 20040101

REACTIONS (8)
  - DYSPHAGIA [None]
  - GASTRITIS EROSIVE [None]
  - GASTROINTESTINAL DISORDER [None]
  - HIATUS HERNIA [None]
  - NAUSEA [None]
  - PERFORMANCE STATUS DECREASED [None]
  - PNEUMONIA [None]
  - SKIN TOXICITY [None]
